FAERS Safety Report 16667150 (Version 1)
Quarter: 2019Q3

REPORT INFORMATION
  Report Type: Spontaneous
  Country: US (occurrence: US)
  Receive Date: 20190805
  Receipt Date: 20190805
  Transmission Date: 20191004
  Serious: No
  Sender: FDA-Public Use
  Company Number: US-GLAXOSMITHKLINE-US2019136632

PATIENT
  Sex: Female

DRUGS (2)
  1. TRANSDERM SCOP [Suspect]
     Active Substance: SCOPOLAMINE
     Indication: NAUSEA
     Dosage: UNK
  2. TRANSDERM SCOP [Suspect]
     Active Substance: SCOPOLAMINE
     Indication: IMPAIRED GASTRIC EMPTYING

REACTIONS (6)
  - Application site hypoaesthesia [Unknown]
  - Hypoaesthesia [Unknown]
  - Application site rash [Unknown]
  - Product use in unapproved indication [Unknown]
  - Application site reaction [Unknown]
  - Application site pruritus [Unknown]

NARRATIVE: CASE EVENT DATE: 201905
